FAERS Safety Report 15481197 (Version 1)
Quarter: 2018Q4

REPORT INFORMATION
  Report Type: Spontaneous
  Country: ZA (occurrence: ZA)
  Receive Date: 20181010
  Receipt Date: 20181010
  Transmission Date: 20190205
  Serious: Yes (Death, Other)
  Sender: FDA-Public Use
  Company Number: ZA-009507513-1810ZAF003047

PATIENT
  Age: 24 Year
  Sex: Male

DRUGS (1)
  1. KEYTRUDA [Suspect]
     Active Substance: PEMBROLIZUMAB
     Indication: TESTIS CANCER
     Dosage: CYCLE 1

REACTIONS (2)
  - Death [Fatal]
  - Product use in unapproved indication [Unknown]
